FAERS Safety Report 5264579-2 (Version None)
Quarter: 2007Q1

REPORT INFORMATION
  Report Type: 
  Country: None (occurrence: None)
  Receive Date: 20070314
  Receipt Date: 20070308
  Transmission Date: 20070707
  Serious: Yes (Other)
  Sender: FDA-Public Use
  Company Number: US-BRISTOL-MYERS SQUIBB COMPANY-13707351

PATIENT
  Age: 55 Year
  Sex: Male

DRUGS (6)
  1. ATAZANAVIR SULFATE [Suspect]
     Indication: HIV INFECTION
  2. STAVUDINE [Concomitant]
     Indication: HIV INFECTION
  3. TENOFOVIR DISOPROXIL FUMARATE [Concomitant]
  4. SULFAMETHOXAZOLE + TRIMETHOPRIM [Concomitant]
  5. FLUCONAZOLE [Concomitant]
  6. CIPROFLOXACIN [Concomitant]

REACTIONS (1)
  - NEPHROLITHIASIS [None]
